FAERS Safety Report 5006990-0 (Version None)
Quarter: 2006Q2

REPORT INFORMATION
  Report Type: 
  Country: None (occurrence: None)
  Receive Date: 20060517
  Receipt Date: 20060508
  Transmission Date: 20061013
  Serious: Yes (Other)
  Sender: FDA-Public Use
  Company Number: GXKR2006GB02567

PATIENT
  Age: 65 Year
  Sex: Female

DRUGS (3)
  1. ASPIRIN [Suspect]
     Indication: TRANSIENT ISCHAEMIC ATTACK
     Dosage: 75 MG, QD
     Dates: start: 20040219
  2. ENBREL [Concomitant]
  3. MELOXICAM (MELOXICAM) [Concomitant]

REACTIONS (4)
  - BONE MARROW FAILURE [None]
  - GRANULOCYTES MATURATION ARREST [None]
  - NEUTROPENIA [None]
  - OESOPHAGEAL CANDIDIASIS [None]
